FAERS Safety Report 14538202 (Version 2)
Quarter: 2018Q1

REPORT INFORMATION
  Report Type: Spontaneous
  Country: FR (occurrence: FR)
  Receive Date: 20180216
  Receipt Date: 20180227
  Transmission Date: 20180509
  Serious: Yes (Hospitalization)
  Sender: FDA-Public Use
  Company Number: FR-ORION CORPORATION ORION PHARMA-ENTC2018-0054

PATIENT
  Age: 84 Year
  Sex: Female

DRUGS (4)
  1. STALEVO [Suspect]
     Active Substance: CARBIDOPA\ENTACAPONE\LEVODOPA
     Indication: PARKINSON^S DISEASE
     Dosage: STRENGTH: 50/12.5/200 MG
     Route: 048
     Dates: start: 2017, end: 20180209
  2. FLECAINE LP [Concomitant]
     Active Substance: FLECAINIDE
     Route: 065
  3. MODOPAR [Suspect]
     Active Substance: BENSERAZIDE HYDROCHLORIDE\LEVODOPA
     Indication: PARKINSON^S DISEASE
     Dosage: STRENGTH: 100/25 MG, AT NIGHT, IF NEEDED; PRN
     Route: 048
     Dates: start: 2017
  4. MODOPAR [Suspect]
     Active Substance: BENSERAZIDE HYDROCHLORIDE\LEVODOPA
     Dosage: STRENGTH: 100/25 MG
     Route: 048
     Dates: start: 20180209

REACTIONS (8)
  - Hallucination, auditory [Recovering/Resolving]
  - Incoherent [Recovering/Resolving]
  - Confusional state [Recovering/Resolving]
  - Dementia [Unknown]
  - Hallucination, visual [Recovering/Resolving]
  - Dehydration [Unknown]
  - Mental disorder [Recovering/Resolving]
  - Drug dose omission [Unknown]

NARRATIVE: CASE EVENT DATE: 201801
